FAERS Safety Report 24986519 (Version 1)
Quarter: 2025Q1

REPORT INFORMATION
  Report Type: Spontaneous
  Country: US (occurrence: None)
  Receive Date: 20250219
  Receipt Date: 20250219
  Transmission Date: 20250408
  Serious: Yes (Hospitalization, Disabling)
  Sender: FDA-CTU
  Company Number: None

PATIENT
  Age: 54 Year
  Sex: Female
  Weight: 65.25 kg

DRUGS (7)
  1. OCREVUS [Suspect]
     Active Substance: OCRELIZUMAB
     Indication: Multiple sclerosis
     Dates: start: 20250214, end: 20250214
  2. Telmisartin [Concomitant]
  3. BUPROPION [Concomitant]
     Active Substance: BUPROPION
  4. LORAZEPAM [Concomitant]
     Active Substance: LORAZEPAM
  5. PREDNISONE [Concomitant]
     Active Substance: PREDNISONE
  6. MECLIZINE [Concomitant]
     Active Substance: MECLIZINE HYDROCHLORIDE
  7. VITAMIN D [Concomitant]
     Active Substance: VITAMIN D NOS

REACTIONS (3)
  - Deafness unilateral [None]
  - Ear discomfort [None]
  - Therapeutic product effect decreased [None]

NARRATIVE: CASE EVENT DATE: 20250214
